FAERS Safety Report 9247291 (Version 1)
Quarter: 2013Q2

REPORT INFORMATION
  Report Type: Spontaneous
  Country: US (occurrence: None)
  Receive Date: 20130419
  Receipt Date: 20130419
  Transmission Date: 20140414
  Serious: Yes (Other)
  Sender: FDA-Public Use
  Company Number: None

PATIENT
  Age: 53 Year
  Sex: Female
  Weight: 58.97 kg

DRUGS (1)
  1. REBIF REBIDOSE [Suspect]
     Indication: MULTIPLE SCLEROSIS
     Dosage: 44 MCG 3X WEEKLY SQ
     Route: 058
     Dates: start: 20130101, end: 20130417

REACTIONS (2)
  - Accidental overdose [None]
  - Cognitive disorder [None]
